FAERS Safety Report 7575258-0 (Version None)
Quarter: 2011Q2

REPORT INFORMATION
  Report Type: 
  Country: None (occurrence: None)
  Receive Date: 20110627
  Receipt Date: 20110613
  Transmission Date: 20111010
  Serious: Yes (Hospitalization)
  Sender: FDA-Public Use
  Company Number: US-ELI_LILLY_AND_COMPANY-US201106004063

PATIENT
  Sex: Female

DRUGS (14)
  1. VALCYTE [Concomitant]
  2. AMBIEN [Concomitant]
  3. POSACONAZOLE [Concomitant]
  4. BACTRIM [Concomitant]
  5. OMEPRAZOLE [Concomitant]
  6. STARLIX [Concomitant]
  7. SYNTHROID [Concomitant]
  8. CELLCEPT [Concomitant]
  9. ASPIRIN [Concomitant]
  10. FORTEO [Suspect]
     Indication: OSTEOPOROSIS
     Dosage: 20 UG, QD
     Dates: start: 20110608
  11. OSCAL [Concomitant]
  12. SIROLIMUS [Concomitant]
  13. PREDNISONE [Concomitant]
  14. PRAVASTATIN [Concomitant]

REACTIONS (4)
  - BACK PAIN [None]
  - DRUG DOSE OMISSION [None]
  - BONE PAIN [None]
  - INCORRECT STORAGE OF DRUG [None]
